FAERS Safety Report 5150537-5 (Version None)
Quarter: 2006Q4

REPORT INFORMATION
  Report Type: 
  Country: None (occurrence: None)
  Receive Date: 20061114
  Receipt Date: 20060421
  Transmission Date: 20070319
  Serious: Yes (Other)
  Sender: FDA-Public Use
  Company Number: US-ROCHE-445472

PATIENT
  Sex: Female
  Weight: 1.6 kg

DRUGS (4)
  1. ACCUTANE [Suspect]
     Indication: ACNE
     Dates: start: 19980510, end: 19981020
  2. FOLIC ACID [Concomitant]
  3. NIFEDIPINE [Concomitant]
     Indication: ILL-DEFINED DISORDER
     Dates: start: 20050630
  4. DEXAMETHASONE TAB [Concomitant]
     Dates: start: 20050630

REACTIONS (6)
  - DRUG EXPOSURE DURING PREGNANCY [None]
  - NORMAL NEWBORN [None]
  - PLACENTAL DISORDER [None]
  - PREMATURE LABOUR [None]
  - PREMATURE RUPTURE OF MEMBRANES [None]
  - THREATENED LABOUR [None]
